FAERS Safety Report 12147772 (Version 1)
Quarter: 2016Q1

REPORT INFORMATION
  Report Type: Spontaneous
  Country: US (occurrence: US)
  Receive Date: 20160304
  Receipt Date: 20160304
  Transmission Date: 20160526
  Serious: Yes (Hospitalization)
  Sender: FDA-Public Use
  Company Number: US-PFIZER INC-2016130890

PATIENT
  Age: 42 Year
  Sex: Female

DRUGS (3)
  1. NEXIUM [Concomitant]
     Active Substance: ESOMEPRAZOLE MAGNESIUM
     Indication: GASTROOESOPHAGEAL REFLUX DISEASE
     Dosage: UNK
  2. DEPO-PROVERA [Suspect]
     Active Substance: MEDROXYPROGESTERONE ACETATE
     Indication: POLYCYSTIC OVARIES
     Dosage: 1 DF, (A SHOT) EVERY 3 TO 6 MONTHS
  3. DEPO-PROVERA [Suspect]
     Active Substance: MEDROXYPROGESTERONE ACETATE
     Indication: CONTRACEPTION
     Dosage: UNK
     Dates: start: 20160125

REACTIONS (18)
  - Hypoaesthesia [Not Recovered/Not Resolved]
  - Dehydration [Unknown]
  - Vomiting [Unknown]
  - Nausea [Not Recovered/Not Resolved]
  - Vaginal haemorrhage [Unknown]
  - Blood potassium decreased [Unknown]
  - Visual impairment [Not Recovered/Not Resolved]
  - Vertigo [Unknown]
  - Hypoacusis [Not Recovered/Not Resolved]
  - Depression [Unknown]
  - Headache [Unknown]
  - Decreased appetite [Unknown]
  - Syncope [Unknown]
  - Abdominal pain [Unknown]
  - Balance disorder [Unknown]
  - Asthenia [Not Recovered/Not Resolved]
  - Chest pain [Unknown]
  - Oral candidiasis [Recovering/Resolving]

NARRATIVE: CASE EVENT DATE: 2016
